FAERS Safety Report 11510713 (Version 1)
Quarter: 2015Q3

REPORT INFORMATION
  Report Type: Spontaneous
  Country: IT (occurrence: IT)
  Receive Date: 20150915
  Receipt Date: 20150915
  Transmission Date: 20151125
  Serious: Yes (Other)
  Sender: FDA-Public Use
  Company Number: IT-SYNTHON BV-NL01PV15_39582

PATIENT
  Age: 61 Year
  Sex: Male

DRUGS (2)
  1. TENOFOVIR DISOPROXIL FUMARATE. [Suspect]
     Active Substance: TENOFOVIR DISOPROXIL FUMARATE
     Indication: HEPATITIS B
     Dosage: 245 MG, DAILY (STOPPED 5 DAYS PRIOR TO ADMISSION)
     Dates: start: 201303
  2. VENLAFAXINE [Interacting]
     Active Substance: VENLAFAXINE HYDROCHLORIDE
     Indication: DEPRESSED MOOD
     Dosage: 150 MG, DAILY
     Dates: start: 201311

REACTIONS (3)
  - Hepatitis B [Recovered/Resolved]
  - Drug interaction [Recovered/Resolved]
  - Transaminases increased [Recovered/Resolved]
